FAERS Safety Report 9137314 (Version 1)
Quarter: 2013Q1

REPORT INFORMATION
  Report Type: Spontaneous
  Country: US (occurrence: US)
  Receive Date: 20130219
  Receipt Date: 20130219
  Transmission Date: 20140127
  Serious: Yes (Other)
  Sender: FDA-Public Use
  Company Number: US-BRISTOL-MYERS SQUIBB COMPANY-16500472

PATIENT
  Sex: Female

DRUGS (2)
  1. ORENCIA [Suspect]
     Route: 042
  2. METHOTREXATE [Suspect]

REACTIONS (2)
  - Bronchitis [Unknown]
  - Lower respiratory tract infection [Unknown]
